FAERS Safety Report 5537482-8 (Version None)
Quarter: 2007Q4

REPORT INFORMATION
  Report Type: 
  Country: None (occurrence: None)
  Receive Date: 20071207
  Receipt Date: 20071203
  Transmission Date: 20080405
  Serious: Yes (Disabling)
  Sender: FDA-Public Use
  Company Number: US-MERCK-0710USA05680

PATIENT
  Age: 46 Year
  Sex: Male
  Weight: 117 kg

DRUGS (1)
  1. JANUVIA [Suspect]
     Indication: TYPE 2 DIABETES MELLITUS
     Route: 048
     Dates: start: 20070307, end: 20070101

REACTIONS (2)
  - PAIN IN EXTREMITY [None]
  - SENSORY DISTURBANCE [None]
